FAERS Safety Report 5905460-2 (Version None)
Quarter: 2008Q4

REPORT INFORMATION
  Report Type: 
  Country: None (occurrence: None)
  Receive Date: 20081001
  Receipt Date: 20081001
  Transmission Date: 20090506
  Serious: Yes (Hospitalization)
  Sender: FDA-Public Use
  Company Number: None

PATIENT
  Age: 69 Year
  Sex: Male
  Weight: 100 kg

DRUGS (2)
  1. INDOMETHACIN [Suspect]
     Indication: PAIN
     Dosage: 25 MG TID PO
     Route: 048
     Dates: start: 20080514, end: 20080618
  2. SALSALATE [Suspect]
     Indication: PAIN
     Dosage: 1 TAB BID PO
     Route: 048
     Dates: start: 20070601, end: 20080618

REACTIONS (8)
  - ANAEMIA [None]
  - ASTHENIA [None]
  - DECREASED APPETITE [None]
  - DUODENAL ULCER [None]
  - EROSIVE OESOPHAGITIS [None]
  - GASTROINTESTINAL ULCER [None]
  - MELAENA [None]
  - UPPER GASTROINTESTINAL HAEMORRHAGE [None]
